FAERS Safety Report 13381046 (Version 1)
Quarter: 2017Q1

REPORT INFORMATION
  Report Type: Spontaneous
  Country: US (occurrence: US)
  Receive Date: 20170328
  Receipt Date: 20170328
  Transmission Date: 20170429
  Serious: Yes (Other)
  Sender: FDA-Public Use
  Company Number: None

PATIENT
  Age: 72 Year
  Sex: Male
  Weight: 79.45 kg

DRUGS (8)
  1. FENOFIBRATE. [Suspect]
     Active Substance: FENOFIBRATE
     Indication: BLOOD CHOLESTEROL ABNORMAL
     Dosage: 1 PER DAY  1 IN AM
     Route: 048
     Dates: start: 20160531, end: 20160603
  2. FLOMAX [Concomitant]
     Active Substance: TAMSULOSIN HYDROCHLORIDE
  3. QUINAPRIL. [Concomitant]
     Active Substance: QUINAPRIL
  4. CARVEDILOL. [Concomitant]
     Active Substance: CARVEDILOL
  5. VITAMIN D3 [Concomitant]
     Active Substance: CHOLECALCIFEROL
  6. FINASTERIDE. [Concomitant]
     Active Substance: FINASTERIDE
  7. PRESERVISION EYE VITAMINS [Concomitant]
  8. HAIR VITAMINS [Concomitant]

REACTIONS (6)
  - Pruritus [None]
  - Dermatitis contact [None]
  - Alopecia [None]
  - Urine odour abnormal [None]
  - Chromaturia [None]
  - Dysuria [None]
